FAERS Safety Report 8358266-1 (Version None)
Quarter: 2012Q2

REPORT INFORMATION
  Report Type: 
  Country: None (occurrence: None)
  Receive Date: 20120514
  Receipt Date: 20120503
  Transmission Date: 20120825
  Serious: Yes (Other)
  Sender: FDA-Public Use
  Company Number: VE-ROCHE-1067565

PATIENT
  Sex: Female

DRUGS (1)
  1. XOLAIR [Suspect]
     Indication: ASTHMA
     Dosage: 450 MG AND 300 MG, EACH 15 DAYS ALTERNATIVELY,THE
     Route: 058
     Dates: start: 20110301

REACTIONS (1)
  - URINARY TRACT INFECTION [None]
